FAERS Safety Report 12850663 (Version 1)
Quarter: 2016Q4

REPORT INFORMATION
  Report Type: Spontaneous
  Country: US (occurrence: US)
  Receive Date: 20161014
  Receipt Date: 20161014
  Transmission Date: 20170207
  Serious: Yes (Other)
  Sender: FDA-Public Use
  Company Number: US-SAOL THERAPEUTICS-2016SAO00871

PATIENT
  Sex: Male

DRUGS (1)
  1. COMPOUNDED BACLOFEN [Suspect]
     Active Substance: BACLOFEN
     Indication: MUSCLE SPASTICITY
     Dosage: 2489 ?G, \DAY
     Route: 037

REACTIONS (2)
  - Decubitus ulcer [Unknown]
  - Device alarm issue [Unknown]

NARRATIVE: CASE EVENT DATE: 20160907
